FAERS Safety Report 8896591 (Version 2)
Quarter: 2012Q4

REPORT INFORMATION
  Report Type: 
  Country: US (occurrence: US)
  Receive Date: 20121108
  Receipt Date: 20121114
  Transmission Date: 20130627
  Serious: Yes (Hospitalization)
  Sender: FDA-Public Use
  Company Number: US-ASTRAZENECA-2012SE84142

PATIENT
  Age: 41 Year
  Sex: Male

DRUGS (2)
  1. SEROQUEL [Suspect]
     Route: 048
  2. SEROQUEL [Suspect]
     Dosage: 100 mg morning + 200 mg at night , total 300 mg
     Route: 048

REACTIONS (8)
  - Tongue biting [Unknown]
  - Convulsion [Unknown]
  - Abnormal behaviour [Unknown]
  - Mental status changes [Unknown]
  - Sleep disorder [Unknown]
  - Somnolence [Unknown]
  - Drug dose omission [Unknown]
  - Intentional drug misuse [Unknown]
